FAERS Safety Report 15594597 (Version 2)
Quarter: 2019Q1

REPORT INFORMATION
  Report Type: Spontaneous
  Country: US (occurrence: US)
  Receive Date: 20181107
  Receipt Date: 20190123
  Transmission Date: 20190417
  Serious: No
  Sender: FDA-Public Use
  Company Number: US-MERZ NORTH AMERICA, INC.-18MRZ-00582

PATIENT
  Age: 31 Year
  Sex: Female
  Weight: 55.84 kg

DRUGS (2)
  1. XEOMIN [Suspect]
     Active Substance: INCOBOTULINUMTOXINA
     Indication: SKIN WRINKLING
     Dosage: TOTAL OF 26 UNITS OF XEOMIN INJECTED INTO MUSCLES IN HER FACE, WITH 4 UNITS ABOVE EACH EYE BROW AND
     Route: 030
     Dates: start: 20181121, end: 20181121
  2. ERGOCALCIFEROL. [Concomitant]
     Active Substance: ERGOCALCIFEROL

REACTIONS (2)
  - Burning sensation [Recovered/Resolved]
  - Pain [Recovered/Resolved]

NARRATIVE: CASE EVENT DATE: 20181121
